FAERS Safety Report 6048270-0 (Version None)
Quarter: 2009Q1

REPORT INFORMATION
  Report Type: 
  Country: None (occurrence: None)
  Receive Date: 20090123
  Receipt Date: 20081203
  Transmission Date: 20090719
  Serious: Yes (Other)
  Sender: FDA-Public Use
  Company Number: BR-JNJFOC-20081201748

PATIENT
  Age: 40 Year
  Sex: Female

DRUGS (4)
  1. PREZISTA [Suspect]
     Indication: ACQUIRED IMMUNODEFICIENCY SYNDROME
     Route: 048
  2. TENOFOVIR [Suspect]
     Indication: ACQUIRED IMMUNODEFICIENCY SYNDROME
  3. LAMIVUDINE [Suspect]
     Indication: ACQUIRED IMMUNODEFICIENCY SYNDROME
  4. ENFUVIRTIDE [Suspect]
     Indication: ACQUIRED IMMUNODEFICIENCY SYNDROME

REACTIONS (4)
  - HEPATIC ENZYME ABNORMAL [None]
  - NAUSEA [None]
  - PYREXIA [None]
  - RASH [None]
